FAERS Safety Report 18414027 (Version 2)
Quarter: 2020Q4

REPORT INFORMATION
  Report Type: Report from Study
  Country: None (occurrence: BR)
  Receive Date: 20201022
  Receipt Date: 20201023
  Transmission Date: 20210114
  Serious: Yes (Other)
  Sender: FDA-Public Use
  Company Number: BR-ABBVIE-20K-020-3617568-00

PATIENT
  Sex: Female
  Weight: 96 kg

DRUGS (3)
  1. MICARDIS [Concomitant]
     Active Substance: TELMISARTAN
     Indication: HYPERTENSION
  2. HUMIRA [Suspect]
     Active Substance: ADALIMUMAB
     Indication: PSORIASIS
     Route: 058
     Dates: start: 20140910
  3. HUMIRA [Suspect]
     Active Substance: ADALIMUMAB
     Dosage: ONE SYRINGE
     Route: 058

REACTIONS (6)
  - Vein disorder [Unknown]
  - Psoriatic arthropathy [Not Recovered/Not Resolved]
  - Varicose vein ruptured [Recovered/Resolved]
  - Lysosomal acid lipase deficiency [Recovering/Resolving]
  - Cataract [Recovering/Resolving]
  - Therapeutic product effect decreased [Unknown]
